FAERS Safety Report 5443267-3 (Version None)
Quarter: 2007Q3

REPORT INFORMATION
  Report Type: 
  Country: None (occurrence: None)
  Receive Date: 20070905
  Receipt Date: 20070824
  Transmission Date: 20080115
  Serious: Yes (Death, Other)
  Sender: FDA-Public Use
  Company Number: GB-AMGEN-UK240948

PATIENT
  Age: 78 Year
  Sex: Male

DRUGS (6)
  1. FILGRASTIM [Suspect]
     Indication: MYELODYSPLASTIC SYNDROME
     Route: 058
     Dates: start: 20070720, end: 20070724
  2. ATENOLOL [Concomitant]
     Route: 048
     Dates: start: 20070718, end: 20070725
  3. CLOPIDOGREL [Concomitant]
  4. ISOSORBIDE MONONITRATE [Concomitant]
  5. OMEPRAZOLE [Concomitant]
     Route: 048
  6. ASPIRIN [Concomitant]
     Route: 048
     Dates: start: 20070718, end: 20070724

REACTIONS (2)
  - CARDIAC OUTPUT DECREASED [None]
  - LACTIC ACIDOSIS [None]
